FAERS Safety Report 19713725 (Version 1)
Quarter: 2021Q3

REPORT INFORMATION
  Report Type: Spontaneous
  Country: US (occurrence: US)
  Receive Date: 20210817
  Receipt Date: 20210817
  Transmission Date: 20211014
  Serious: Yes (Hospitalization)
  Sender: FDA-Public Use
  Company Number: None

PATIENT
  Age: 45 Year
  Sex: Female
  Weight: 59.9 kg

DRUGS (3)
  1. LENALIDOMIDE (CC?5013) [Suspect]
     Active Substance: LENALIDOMIDE
     Dates: end: 20210104
  2. DARATUMUMAB [Suspect]
     Active Substance: DARATUMUMAB
     Dates: end: 20201215
  3. DEXAMETHASONE. [Suspect]
     Active Substance: DEXAMETHASONE
     Dates: end: 20201215

REACTIONS (3)
  - Dyspnoea [None]
  - Urticaria [None]
  - Unresponsive to stimuli [None]

NARRATIVE: CASE EVENT DATE: 20201215
